FAERS Safety Report 5127521-0 (Version None)
Quarter: 2006Q4

REPORT INFORMATION
  Report Type: 
  Country: None (occurrence: None)
  Receive Date: 20061010
  Receipt Date: 20060927
  Transmission Date: 20070319
  Serious: Yes (Other)
  Sender: FDA-Public Use
  Company Number: 2006118067

PATIENT
  Age: 53 Year
  Sex: Male

DRUGS (2)
  1. IDAMYCIN SOLUTION,                      (IDARUBICIN HYDROCHLORIDE) [Suspect]
     Indication: ACUTE MYELOID LEUKAEMIA
     Dosage: INTRAVENOUS
     Route: 042
  2. CYTARABINE [Suspect]
     Indication: ACUTE MYELOID LEUKAEMIA
     Dosage: INTRAVENOUS
     Route: 042

REACTIONS (1)
  - ACUTE MYELOID LEUKAEMIA RECURRENT [None]
